FAERS Safety Report 9157024 (Version 1)
Quarter: 2013Q1

REPORT INFORMATION
  Report Type: Spontaneous
  Country: US (occurrence: None)
  Receive Date: 20130308
  Receipt Date: 20130308
  Transmission Date: 20140127
  Serious: No
  Sender: FDA-Public Use
  Company Number: None

PATIENT
  Sex: Female
  Weight: 61.24 kg

DRUGS (2)
  1. BONIVA [Suspect]
     Indication: BONE LOSS
     Route: 048
     Dates: start: 2007, end: 2012
  2. FOSOMAX [Concomitant]

REACTIONS (2)
  - Loose tooth [None]
  - Osteonecrosis [None]
